FAERS Safety Report 7765665-5 (Version None)
Quarter: 2011Q3

REPORT INFORMATION
  Report Type: 
  Country: None (occurrence: None)
  Receive Date: 20110921
  Receipt Date: 20110915
  Transmission Date: 20111222
  Serious: Yes (Hospitalization, Disabling, Other)
  Sender: FDA-Public Use
  Company Number: US-PFIZER INC-2011218907

PATIENT
  Sex: Female
  Weight: 104.3 kg

DRUGS (17)
  1. NICOTROL [Suspect]
     Indication: SMOKING CESSATION THERAPY
     Dosage: UNK
     Dates: start: 20050401, end: 20100101
  2. TYLENOL-500 [Concomitant]
     Dosage: UNK
  3. XANAX [Concomitant]
     Dosage: UNK
  4. CARVEDILOL [Concomitant]
  5. METFORMIN [Concomitant]
     Dosage: UNK
  6. NEURONTIN [Concomitant]
     Dosage: UNK
  7. CYMBALTA [Concomitant]
     Dosage: UNK
  8. NICOTROL [Suspect]
     Dosage: 4 TO 6 TIMES DAILY
  9. FUROSEMIDE [Concomitant]
  10. KLOR-CON [Concomitant]
  11. LISINOPRIL [Concomitant]
     Dosage: UNK
  12. HYDROCODONE [Concomitant]
  13. PRAVASTATIN [Concomitant]
  14. PREVACID [Concomitant]
     Dosage: UNK
  15. ACETYLSALICYLIC ACID [Concomitant]
     Dosage: UNK
  16. NICOTROL [Suspect]
     Dosage: DAILY
  17. MAXZIDE [Concomitant]
     Dosage: UNK

REACTIONS (6)
  - MYOCARDIAL INFARCTION [None]
  - HYPOAESTHESIA [None]
  - RASH [None]
  - DIABETES MELLITUS [None]
  - NEUROPATHY PERIPHERAL [None]
  - OEDEMA PERIPHERAL [None]
